FAERS Safety Report 8572169-9 (Version None)
Quarter: 2012Q3

REPORT INFORMATION
  Report Type: 
  Country: None (occurrence: None)
  Receive Date: 20120806
  Receipt Date: 20120727
  Transmission Date: 20120928
  Serious: Yes (Hospitalization, Disabling, Other)
  Sender: FDA-Public Use
  Company Number: US-US-EMD SERONO, INC.-7150968

PATIENT
  Sex: Male

DRUGS (1)
  1. REBIF [Suspect]
     Indication: MULTIPLE SCLEROSIS
     Route: 058
     Dates: start: 20040216

REACTIONS (5)
  - SECONDARY PROGRESSIVE MULTIPLE SCLEROSIS [None]
  - SEPSIS [None]
  - DIABETES MELLITUS [None]
  - WEIGHT DECREASED [None]
  - URINARY TRACT INFECTION [None]
